FAERS Safety Report 14997155 (Version 3)
Quarter: 2018Q3

REPORT INFORMATION
  Report Type: Spontaneous
  Country: US (occurrence: US)
  Receive Date: 20180611
  Receipt Date: 20180906
  Transmission Date: 20181010
  Serious: No
  Sender: FDA-Public Use
  Company Number: US-ASTRAZENECA-2018SE72719

PATIENT
  Sex: Male
  Weight: 94.8 kg

DRUGS (1)
  1. BYDUREON BCISE [Suspect]
     Active Substance: EXENATIDE
     Indication: INSULIN-REQUIRING TYPE 2 DIABETES MELLITUS
     Route: 058

REACTIONS (5)
  - Injection site extravasation [Unknown]
  - Wrong technique in product usage process [Unknown]
  - Circumstance or information capable of leading to medication error [Unknown]
  - Injection site mass [Recovering/Resolving]
  - Injection site bruising [Unknown]
